FAERS Safety Report 14325047 (Version 3)
Quarter: 2018Q1

REPORT INFORMATION
  Report Type: Spontaneous
  Country: US (occurrence: US)
  Receive Date: 20171226
  Receipt Date: 20180213
  Transmission Date: 20180509
  Serious: Yes (Other)
  Sender: FDA-Public Use
  Company Number: US-CLOVIS ONCOLOGY-CLO-2017-001425

PATIENT
  Age: 78 Year
  Sex: Female

DRUGS (3)
  1. RUBRACA [Suspect]
     Active Substance: RUCAPARIB CAMSYLATE
     Indication: LUNG CANCER METASTATIC
  2. RUBRACA [Suspect]
     Active Substance: RUCAPARIB CAMSYLATE
     Indication: OVARIAN CANCER
     Dosage: 600 MG, BID
     Route: 048
     Dates: start: 201711, end: 2017
  3. RUBRACA [Suspect]
     Active Substance: RUCAPARIB CAMSYLATE
     Indication: METASTATIC LYMPHOMA
     Dosage: 300 MG, BID
     Route: 048

REACTIONS (15)
  - Metastasis [Unknown]
  - Hypertension [Unknown]
  - Eosinophil count increased [Unknown]
  - Vomiting [Unknown]
  - Liver function test increased [Unknown]
  - Monocyte count increased [Recovered/Resolved]
  - Glomerular filtration rate decreased [Unknown]
  - Liver function test abnormal [Recovering/Resolving]
  - Nausea [Unknown]
  - Anaemia [Recovered/Resolved]
  - Dysgeusia [Recovering/Resolving]
  - Diarrhoea [Not Recovered/Not Resolved]
  - Lymphocyte count decreased [Unknown]
  - Prescribed underdose [Unknown]
  - Mean platelet volume increased [Unknown]

NARRATIVE: CASE EVENT DATE: 2017
